FAERS Safety Report 6471739-1 (Version None)
Quarter: 2009Q4

REPORT INFORMATION
  Report Type: 
  Country: None (occurrence: None)
  Receive Date: 20091203
  Receipt Date: 20090310
  Transmission Date: 20100525
  Serious: Yes (Hospitalization)
  Sender: FDA-Public Use
  Company Number: US-ELI_LILLY_AND_COMPANY-US200803002948

PATIENT
  Sex: Male
  Weight: 111.11 kg

DRUGS (1)
  1. ZYPREXA [Suspect]
     Indication: DEPRESSION
     Dosage: UNK, UNK
     Dates: start: 20010808, end: 20011011

REACTIONS (2)
  - DIABETES MELLITUS [None]
  - STENT PLACEMENT [None]
